FAERS Safety Report 20178304 (Version 1)
Quarter: 2021Q4

REPORT INFORMATION
  Report Type: Report from Study
  Country: AR (occurrence: AR)
  Receive Date: 20211213
  Receipt Date: 20211213
  Transmission Date: 20220303
  Serious: Yes (Death, Other)
  Sender: FDA-Public Use
  Company Number: AR-ABBVIE-21K-007-4193044-00

PATIENT
  Age: 72 Year
  Sex: Female

DRUGS (3)
  1. VENETOCLAX [Suspect]
     Active Substance: VENETOCLAX
     Indication: Chronic lymphocytic leukaemia
     Dosage: NOT OPTIMAL DOSE (AS REPORTED)
     Route: 046
  2. RITUXIMAB [Concomitant]
     Active Substance: RITUXIMAB
     Indication: Product used for unknown indication
  3. CHLORAMBUCIL [Concomitant]
     Active Substance: CHLORAMBUCIL
     Indication: Product used for unknown indication

REACTIONS (4)
  - Death [Fatal]
  - Chronic lymphocytic leukaemia [Unknown]
  - Adrenomegaly [Unknown]
  - Abdominal symptom [Unknown]

NARRATIVE: CASE EVENT DATE: 20160101
